FAERS Safety Report 7527756-3 (Version None)
Quarter: 2011Q2

REPORT INFORMATION
  Report Type: 
  Country: None (occurrence: None)
  Receive Date: 20110527
  Receipt Date: 20110513
  Transmission Date: 20111010
  Serious: Yes (Other)
  Sender: FDA-Public Use
  Company Number: 1000019334

PATIENT
  Age: 43 Year
  Sex: Female

DRUGS (5)
  1. SERTRALINE (SERTRALINE) (SERTRALINE) [Concomitant]
  2. ESCITALOPRAM [Suspect]
     Indication: DEPRESSION
     Dosage: 20 MG (20 MG,1 IN 1 D),ORAL
     Route: 048
  3. DULOXETINE (DULOXETINE) (DULOXETINE) [Concomitant]
  4. ESCITALOPRAM [Suspect]
     Indication: DEPRESSION
     Dosage: 10 MG (10 MG,1 IN 1 D),ORAL
     Route: 048
     Dates: start: 20100101
  5. PROZAC (FLUOXETINE) (FLUOXETINE) [Concomitant]

REACTIONS (18)
  - PARANOIA [None]
  - DYSKINESIA [None]
  - HEADACHE [None]
  - IMPULSIVE BEHAVIOUR [None]
  - WITHDRAWAL SYNDROME [None]
  - AGGRESSION [None]
  - SEDATION [None]
  - DEPRESSED MOOD [None]
  - LOSS OF LIBIDO [None]
  - ANXIETY [None]
  - EMOTIONAL DISORDER [None]
  - ANGER [None]
  - SEXUAL DYSFUNCTION [None]
  - SUICIDAL IDEATION [None]
  - BRUXISM [None]
  - IRRITABILITY [None]
  - AGITATION [None]
  - INSOMNIA [None]
